FAERS Safety Report 9633640 (Version 2)
Quarter: 2013Q4

REPORT INFORMATION
  Report Type: Spontaneous
  Country: US (occurrence: US)
  Receive Date: 20131021
  Receipt Date: 20131120
  Transmission Date: 20140711
  Serious: No
  Sender: FDA-Public Use
  Company Number: US-PFIZER INC-2013296657

PATIENT
  Age: 58 Year
  Sex: Female

DRUGS (1)
  1. NEOSPORIN [Suspect]
     Dosage: UNK
     Route: 061

REACTIONS (3)
  - Rash [Recovered/Resolved]
  - Blister [Recovered/Resolved]
  - Pruritus [Recovered/Resolved]
